FAERS Safety Report 4478878-5 (Version None)
Quarter: 2004Q4

REPORT INFORMATION
  Report Type: 
  Country: None (occurrence: None)
  Receive Date: 20041014
  Receipt Date: 20041006
  Transmission Date: 20050328
  Serious: Yes (Other)
  Sender: FDA-Public Use
  Company Number: JP-2004-030545

PATIENT
  Age: 30 Year
  Sex: Female

DRUGS (15)
  1. BETAFERON (INTERFERON BETA- 1B) INJECTION, 250UG [Suspect]
     Indication: MULTIPLE SCLEROSIS
     Dosage: SEE IMAGE
     Route: 058
     Dates: start: 20031222, end: 20031224
  2. BETAFERON (INTERFERON BETA- 1B) INJECTION, 250UG [Suspect]
     Indication: MULTIPLE SCLEROSIS
     Dosage: SEE IMAGE
     Route: 058
     Dates: start: 20031226, end: 20040315
  3. BETAFERON (INTERFERON BETA- 1B) INJECTION, 250UG [Suspect]
     Indication: MULTIPLE SCLEROSIS
     Dosage: SEE IMAGE
     Route: 058
     Dates: start: 20040316, end: 20040323
  4. LENDORM [Concomitant]
  5. LOXONIN (LOXOPROFEN SODIUM) [Concomitant]
  6. SELBEX (TEPRENONE) [Concomitant]
  7. ALPRAZOLAM [Concomitant]
  8. DANTRIUM [Concomitant]
  9. CINAL [Concomitant]
  10. VOLTAREN [Concomitant]
  11. ISODINE (POVIDONE-IODINE) [Concomitant]
  12. LORAZEPAM [Concomitant]
  13. DOGMATYL [Concomitant]
  14. CEFACLOR [Concomitant]
  15. PURSENNID (SENNOSIDE A+B, SENNOSIDE A+B CALCIUM) [Concomitant]

REACTIONS (3)
  - ASPARTATE AMINOTRANSFERASE INCREASED [None]
  - HEPATIC FUNCTION ABNORMAL [None]
  - LIVER DISORDER [None]
